FAERS Safety Report 20523257 (Version 1)
Quarter: 2022Q1

REPORT INFORMATION
  Report Type: Spontaneous
  Country: US (occurrence: None)
  Receive Date: 20220227
  Receipt Date: 20220227
  Transmission Date: 20220423
  Serious: No
  Sender: FDA-Public Use
  Company Number: 2022A062983

PATIENT
  Age: 789 Month
  Sex: Male

DRUGS (3)
  1. BREZTRI [Suspect]
     Active Substance: BUDESONIDE\FORMOTEROL\GLYCOPYRROLATE
     Indication: Emphysema
     Dosage: TWO PUFFS TWO TIMES A DAY
     Route: 055
     Dates: start: 202111
  2. BREZTRI [Suspect]
     Active Substance: BUDESONIDE\FORMOTEROL\GLYCOPYRROLATE
     Indication: Chronic obstructive pulmonary disease
     Dosage: TWO PUFFS TWO TIMES A DAY
     Route: 055
     Dates: start: 202111
  3. BREZTRI [Suspect]
     Active Substance: BUDESONIDE\FORMOTEROL\GLYCOPYRROLATE
     Indication: Wheezing
     Dosage: TWO PUFFS TWO TIMES A DAY
     Route: 055
     Dates: start: 202111

REACTIONS (4)
  - Taste disorder [Unknown]
  - Product dose omission in error [Unknown]
  - Device malfunction [Unknown]
  - Intentional device use issue [Unknown]

NARRATIVE: CASE EVENT DATE: 20220201
